FAERS Safety Report 5350888-5 (Version None)
Quarter: 2007Q2

REPORT INFORMATION
  Report Type: 
  Country: None (occurrence: None)
  Receive Date: 20070608
  Receipt Date: 20070604
  Transmission Date: 20071010
  Serious: Yes (Other)
  Sender: FDA-Public Use
  Company Number: D0053474A

PATIENT
  Age: 73 Year
  Sex: Female

DRUGS (2)
  1. QUILONUM RETARD [Suspect]
     Dosage: 4500MG SINGLE DOSE
     Route: 048
  2. LEVOTHYROXINE SODIUM [Suspect]
     Dosage: 750MCG SINGLE DOSE
     Route: 048

REACTIONS (7)
  - DIARRHOEA [None]
  - HYPERHIDROSIS [None]
  - INTENTIONAL OVERDOSE [None]
  - MULTIPLE DRUG OVERDOSE INTENTIONAL [None]
  - MUSCLE CONTRACTIONS INVOLUNTARY [None]
  - SUICIDE ATTEMPT [None]
  - TACHYCARDIA [None]
